FAERS Safety Report 18006588 (Version 2)
Quarter: 2020Q3

REPORT INFORMATION
  Report Type: Spontaneous
  Country: IT (occurrence: IT)
  Receive Date: 20200710
  Receipt Date: 20200715
  Transmission Date: 20201103
  Serious: Yes (Hospitalization)
  Sender: FDA-Public Use
  Company Number: IT-PFIZER INC-2020264031

PATIENT
  Age: 12 Year
  Sex: Female

DRUGS (2)
  1. ZESSLY [Suspect]
     Active Substance: INFLIXIMAB
     Dosage: 100 MG
     Route: 065
     Dates: start: 20200608, end: 20200608
  2. ZESSLY [Suspect]
     Active Substance: INFLIXIMAB
     Dosage: 340 MG, CYCLIC
     Route: 042
     Dates: start: 20200608, end: 20200608

REACTIONS (2)
  - Abdominal pain [Recovered/Resolved]
  - Vomiting [Recovered/Resolved]

NARRATIVE: CASE EVENT DATE: 20200608
